FAERS Safety Report 4731438-0 (Version None)
Quarter: 2005Q3

REPORT INFORMATION
  Report Type: 
  Country: None (occurrence: None)
  Receive Date: 20050801
  Receipt Date: 20050801
  Transmission Date: 20060218
  Serious: Yes (Other)
  Sender: FDA-Public Use
  Company Number: None

PATIENT
  Sex: Female
  Weight: 82 kg

DRUGS (7)
  1. TEMOZOLAMIDE [Suspect]
     Indication: GLIOBLASTOMA MULTIFORME
     Dosage: 75MG/M2
     Dates: start: 20050601, end: 20050623
  2. RT [Concomitant]
  3. ZANTAC [Concomitant]
  4. DILANTIN [Concomitant]
  5. DECADRON [Concomitant]
  6. BACTRIM [Concomitant]
  7. OXYCODON [Concomitant]

REACTIONS (1)
  - THROMBOCYTOPENIA [None]
